FAERS Safety Report 5162086-9 (Version None)
Quarter: 2006Q4

REPORT INFORMATION
  Report Type: 
  Country: None (occurrence: None)
  Receive Date: 20061121
  Receipt Date: 20061113
  Transmission Date: 20070319
  Serious: Yes (Disabling)
  Sender: FDA-Public Use
  Company Number: DK-2006-032020

PATIENT
  Age: 22 Year
  Sex: Female
  Weight: 49.3 kg

DRUGS (3)
  1. YASMIN [Suspect]
     Indication: ORAL CONTRACEPTION
     Dosage: 1 TAB(S), ORAL
     Route: 048
     Dates: start: 20050101, end: 20050101
  2. NEOGENTROL(ETHINYLESTRADIOL, LEVONORGESTREL) [Suspect]
     Indication: CONTRACEPTION
     Dosage: ORAL
     Route: 048
     Dates: start: 20020101, end: 20020101
  3. TEGRETOL [Concomitant]

REACTIONS (7)
  - ABASIA [None]
  - BLINDNESS TRANSIENT [None]
  - DIZZINESS [None]
  - DYSKINESIA [None]
  - NAUSEA [None]
  - PARAESTHESIA [None]
  - VOMITING [None]
